FAERS Safety Report 11757737 (Version 1)
Quarter: 2015Q4

REPORT INFORMATION
  Report Type: Spontaneous
  Country: US (occurrence: None)
  Receive Date: 20151119
  Receipt Date: 20151119
  Transmission Date: 20160304
  Serious: Yes (Other)
  Sender: FDA-Public Use
  Company Number: None

PATIENT

DRUGS (1)
  1. CREST 3D WHITE WHITESTRIPS DENTAL WHITENING KIT UNKNOWN VERSION HYDROGEN PEROXIDE 5.3-14% THE PROCTER + GAMBLE COMPANY [Suspect]
     Active Substance: HYDROGEN PEROXIDE
     Indication: DENTAL COSMETIC PROCEDURE
     Dosage: USED AS DIRECTED ?INTRACRAL?THERAPY?FOR A FEW MONTHS ENDING JAN/2015
     Dates: end: 201501

REACTIONS (3)
  - Tooth fracture [None]
  - Toothache [None]
  - Tooth injury [None]

NARRATIVE: CASE EVENT DATE: 201510
